FAERS Safety Report 5363894-1 (Version None)
Quarter: 2007Q2

REPORT INFORMATION
  Report Type: 
  Country: None (occurrence: None)
  Receive Date: 20070530
  Receipt Date: 20070109
  Transmission Date: 20071010
  Serious: No
  Sender: FDA-Public Use
  Company Number: 2007PV028104

PATIENT
  Age: 58 Year
  Sex: Female

DRUGS (6)
  1. BYETTA [Suspect]
     Indication: DIABETES MELLITUS NON-INSULIN-DEPENDENT
     Dosage: 10 M CG; BID; SC, 5 MCG; BID; SC
     Route: 058
     Dates: start: 20060804, end: 20060901
  2. BYETTA [Suspect]
     Indication: DIABETES MELLITUS NON-INSULIN-DEPENDENT
     Dosage: 10 M CG; BID; SC, 5 MCG; BID; SC
     Route: 058
     Dates: start: 20060901
  3. ISOPHANE INSULIN [Concomitant]
  4. GLYBURIDE [Concomitant]
  5. LEVEMIR [Concomitant]
  6. METFORMIN HCL [Concomitant]

REACTIONS (6)
  - BLOOD GLUCOSE DECREASED [None]
  - BLOOD GLUCOSE INCREASED [None]
  - GLYCOSYLATED HAEMOGLOBIN INCREASED [None]
  - MALAISE [None]
  - TREMOR [None]
  - WEIGHT INCREASED [None]
